FAERS Safety Report 7744642-4 (Version None)
Quarter: 2011Q3

REPORT INFORMATION
  Report Type: 
  Country: None (occurrence: None)
  Receive Date: 20110912
  Receipt Date: 20110829
  Transmission Date: 20111222
  Serious: Yes (Other)
  Sender: FDA-Public Use
  Company Number: PHHY2011AU73711

PATIENT
  Sex: Female
  Weight: 69 kg

DRUGS (5)
  1. CLIMARA [Concomitant]
     Dosage: 50/3.8 MG WEEKLY
     Route: 061
     Dates: start: 20030101
  2. METFORMIN HCL [Concomitant]
     Indication: DIABETES MELLITUS
     Dosage: 1000 MG, BID
     Route: 048
     Dates: start: 20000101
  3. LIPITOR [Concomitant]
     Dosage: 40 MG, DAILY
     Route: 048
     Dates: start: 20060101
  4. EXFORGE [Suspect]
     Indication: HYPERTENSION
     Dosage: 5 MG AMLODIPINE/ 160 MG VALSARTAN
     Route: 048
     Dates: start: 20110726, end: 20110807
  5. NOVOMIX [Concomitant]
     Indication: DIABETES MELLITUS
     Dosage: 15-18 U, BID
     Route: 058
     Dates: start: 20110627

REACTIONS (4)
  - VISION BLURRED [None]
  - EYE PAIN [None]
  - PHOTOPHOBIA [None]
  - HEADACHE [None]
